FAERS Safety Report 8728656 (Version 2)
Quarter: 2014Q1

REPORT INFORMATION
  Report Type: Report from Study
  Country: MX (occurrence: MX)
  Receive Date: 20120817
  Receipt Date: 20140114
  Transmission Date: 20141002
  Serious: No
  Sender: FDA-Public Use
  Company Number: PHHY2012MX070424

PATIENT
  Age: 82 Year
  Sex: Male

DRUGS (6)
  1. EXELON PATCH [Suspect]
     Indication: DEMENTIA ALZHEIMER^S TYPE
     Dosage: 4.6 MG (5 CM2) PER DAY
     Route: 062
     Dates: start: 201205, end: 2013
  2. ENALAPRIL [Concomitant]
     Dosage: 2 UKN, PER DAY
     Dates: start: 201008
  3. OMEPRAZOL [Concomitant]
     Dosage: 1 UKN, PER DAY
     Dates: start: 201111
  4. FOLIC ACID [Concomitant]
     Dosage: 1 UKN, PER DAY
     Dates: start: 201111
  5. VITAMIN B [Concomitant]
     Dosage: 1 UNK PER DAY
     Dates: start: 201111
  6. ESIDRIX [Concomitant]
     Dosage: 1 UNK, PER DAY
     Dates: start: 201205

REACTIONS (4)
  - Irritability [Not Recovered/Not Resolved]
  - Fatigue [Not Recovered/Not Resolved]
  - Drug ineffective [Unknown]
  - Dementia Alzheimer^s type [Unknown]
